FAERS Safety Report 23727631 (Version 3)
Quarter: 2024Q3

REPORT INFORMATION
  Report Type: Spontaneous
  Country: US (occurrence: US)
  Receive Date: 20240410
  Receipt Date: 20240918
  Transmission Date: 20241017
  Serious: No
  Sender: Unknown Manufacturer
  Company Number: US-CYCLE PHARMACEUTICALS LTD-2024-CYC-000044

PATIENT

DRUGS (7)
  1. TASCENSO ODT [Suspect]
     Active Substance: FINGOLIMOD LAURYL SULFATE
     Indication: Multiple sclerosis
     Dosage: 0.5 MG, QD
     Route: 048
     Dates: start: 20240403
  2. TASCENSO ODT [Suspect]
     Active Substance: FINGOLIMOD LAURYL SULFATE
     Dosage: 0.5 MG, QD
     Route: 048
     Dates: start: 20240425
  3. ZOLOFT [Concomitant]
     Active Substance: SERTRALINE HYDROCHLORIDE
     Indication: Product used for unknown indication
     Route: 065
  4. BUSPAR [Concomitant]
     Active Substance: BUSPIRONE HYDROCHLORIDE
     Indication: Product used for unknown indication
     Route: 065
  5. PROPRANOLOL [Concomitant]
     Active Substance: PROPRANOLOL HYDROCHLORIDE
     Indication: Product used for unknown indication
     Route: 065
  6. VITAMIN D NOS [Concomitant]
     Active Substance: CHOLECALCIFEROL\ERGOCALCIFEROL
     Indication: Product used for unknown indication
     Route: 065
  7. LION^S MANE [HERICIUM ERINACEUS MYCELIUM] [Concomitant]
     Indication: Product used for unknown indication
     Route: 065

REACTIONS (3)
  - Rash pruritic [Recovering/Resolving]
  - Food allergy [Unknown]
  - Headache [Recovered/Resolved]

NARRATIVE: CASE EVENT DATE: 20240401
